FAERS Safety Report 16346129 (Version 1)
Quarter: 2019Q2

REPORT INFORMATION
  Report Type: Spontaneous
  Country: ES (occurrence: ES)
  Receive Date: 20190523
  Receipt Date: 20190523
  Transmission Date: 20190711
  Serious: Yes (Hospitalization)
  Sender: FDA-Public Use
  Company Number: ES-CIPLA LTD.-2019ES03967

PATIENT

DRUGS (3)
  1. SINTROM [Interacting]
     Active Substance: ACENOCOUMAROL
     Indication: ATRIAL FIBRILLATION
     Dosage: 1 MILLIGRAM PER DAY
     Route: 048
     Dates: start: 20150514, end: 20180402
  2. LEVOFLOXACIN. [Suspect]
     Active Substance: LEVOFLOXACIN
     Indication: URINARY TRACT INFECTION
     Dosage: UNK
     Route: 065
     Dates: start: 20180331, end: 20180402
  3. CIPROFLOXACINO /00697202/ [Interacting]
     Active Substance: CIPROFLOXACIN HYDROCHLORIDE
     Indication: URINARY TRACT INFECTION
     Dosage: 500 MILLIGRAM, BID (EVERY 12 HOURS)
     Route: 048
     Dates: start: 20180328, end: 20180330

REACTIONS (4)
  - Gingival bleeding [Recovered/Resolved]
  - Hypocoagulable state [Recovered/Resolved]
  - Haematoma [Recovered/Resolved]
  - Anaemia [Recovering/Resolving]

NARRATIVE: CASE EVENT DATE: 20180331
